FAERS Safety Report 14301518 (Version 6)
Quarter: 2018Q1

REPORT INFORMATION
  Report Type: Report from Study
  Country: PL (occurrence: PL)
  Receive Date: 20171219
  Receipt Date: 20180216
  Transmission Date: 20180509
  Serious: Yes (Hospitalization)
  Sender: FDA-Public Use
  Company Number: PHHO2017PL016779

PATIENT
  Age: 70 Year
  Sex: Male
  Weight: 93 kg

DRUGS (7)
  1. LBH589 [Suspect]
     Active Substance: PANOBINOSTAT
     Indication: PLASMA CELL MYELOMA
     Dosage: 15 MG, OT
     Route: 048
     Dates: start: 20170818, end: 20171211
  2. AMOXYCILLIN [Concomitant]
     Active Substance: AMOXICILLIN
     Indication: UPPER RESPIRATORY TRACT INFECTION
     Dosage: 1000 MG, BID
     Route: 048
     Dates: start: 20171127, end: 20171211
  3. BORTEZOMIB [Suspect]
     Active Substance: BORTEZOMIB
     Indication: PLASMA CELL MYELOMA
     Dosage: 2 MG, OT
     Route: 058
     Dates: start: 20170818, end: 20171211
  4. LBH589 [Suspect]
     Active Substance: PANOBINOSTAT
     Dosage: 15 MG, OT
     Route: 048
     Dates: start: 20171227
  5. BORTEZOMIB [Suspect]
     Active Substance: BORTEZOMIB
     Dosage: 2 MG, OT
     Route: 058
     Dates: start: 20171227
  6. DEXAMETHASONE. [Suspect]
     Active Substance: DEXAMETHASONE
     Indication: PLASMA CELL MYELOMA
     Dosage: 10 MG, OT
     Route: 048
     Dates: start: 20170818, end: 20171211
  7. DEXAMETHASONE. [Suspect]
     Active Substance: DEXAMETHASONE
     Dosage: 10 MG, OT
     Route: 048
     Dates: start: 20171227

REACTIONS (1)
  - Chronic obstructive pulmonary disease [Recovering/Resolving]

NARRATIVE: CASE EVENT DATE: 20171211
